FAERS Safety Report 9307162 (Version 2)
Quarter: 2013Q2

REPORT INFORMATION
  Report Type: Spontaneous
  Country: US (occurrence: US)
  Receive Date: 20130524
  Receipt Date: 20130628
  Transmission Date: 20140414
  Serious: Yes (Other)
  Sender: FDA-Public Use
  Company Number: US-PFIZER INC-2013158809

PATIENT
  Age: 57 Year
  Sex: Female

DRUGS (5)
  1. LYRICA [Suspect]
     Dosage: 150 MG, 2X/DAY
  2. BABY ASPIRIN [Concomitant]
     Dosage: 81 MG, 1X/DAY
     Route: 048
  3. METFORMIN HYDROCHLORIDE [Concomitant]
     Dosage: 1000 MG, 2X/DAY
     Route: 048
  4. LISINOPRIL W/HYDROCHLOROTHIAZIDE [Concomitant]
     Dosage: 20-12.5 MG, 1X/DAY
     Route: 048
  5. TRAMADOL HYDROCHLORIDE [Concomitant]
     Dosage: 50 MG, 2 TIMES A DAY AS NEEDED
     Route: 048

REACTIONS (1)
  - Blood glucose abnormal [Unknown]
